FAERS Safety Report 8832978 (Version 2)
Quarter: 2013Q1

REPORT INFORMATION
  Report Type: Spontaneous
  Country: DK (occurrence: DK)
  Receive Date: 20121010
  Receipt Date: 20130312
  Transmission Date: 20140127
  Serious: Yes (Congenital Anomaly)
  Sender: FDA-Public Use
  Company Number: PHHY2012DK086099

PATIENT
  Age: 0 Year
  Sex: Female
  Weight: 3.5 kg

DRUGS (1)
  1. SERTRALINE [Suspect]
     Route: 064

REACTIONS (3)
  - Anomaly of external ear congenital [Not Recovered/Not Resolved]
  - Congenital anomaly of inner ear [Not Recovered/Not Resolved]
  - Foetal exposure during pregnancy [Recovered/Resolved]
